FAERS Safety Report 21006032 (Version 2)
Quarter: 2022Q3

REPORT INFORMATION
  Report Type: Report from Study
  Country: US (occurrence: US)
  Receive Date: 20220624
  Receipt Date: 20220720
  Transmission Date: 20221026
  Serious: Yes (Other)
  Sender: FDA-Public Use
  Company Number: US-BRISTOL-MYERS SQUIBB COMPANY-2022-060118

PATIENT
  Age: 71 Year
  Sex: Male

DRUGS (13)
  1. IBUPROFEN [Concomitant]
     Active Substance: IBUPROFEN
     Indication: Pain in extremity
     Dosage: AS NECESSARY
     Route: 048
     Dates: start: 20200320
  2. ATORVASTATIN [Concomitant]
     Active Substance: ATORVASTATIN
     Indication: Hyperlipidaemia
     Dosage: DAILY
     Route: 048
     Dates: start: 20190625
  3. POTASSIUM CHLORIDE [Concomitant]
     Active Substance: POTASSIUM CHLORIDE
     Indication: Prophylaxis
     Dosage: DAILY
     Route: 048
     Dates: start: 20220614
  4. TORSEMIDE [Concomitant]
     Active Substance: TORSEMIDE
     Indication: Hypertrophic cardiomyopathy
     Route: 048
     Dates: start: 20220605, end: 20220612
  5. TORSEMIDE [Concomitant]
     Active Substance: TORSEMIDE
     Dosage: DAILY AS NEEDED
     Route: 048
     Dates: start: 20210812, end: 20220604
  6. AMLODIPINE [Concomitant]
     Active Substance: AMLODIPINE BESYLATE
     Indication: Hypertension
     Dosage: DAILY
     Route: 048
     Dates: start: 20180726
  7. METOPROLOL SUCCINATE [Concomitant]
     Active Substance: METOPROLOL SUCCINATE
     Indication: Hypertrophic cardiomyopathy
     Dosage: DAILY
     Route: 048
     Dates: start: 20180505
  8. CYANOCOBALAMIN [Concomitant]
     Active Substance: CYANOCOBALAMIN
     Indication: Supplementation therapy
     Dosage: DAILY
     Route: 048
     Dates: start: 2015
  9. ASCORBIC ACID [Concomitant]
     Active Substance: ASCORBIC ACID
     Indication: Supplementation therapy
     Route: 048
     Dates: start: 20140602
  10. ASPIRIN [Concomitant]
     Active Substance: ASPIRIN
     Indication: Prophylaxis
     Dosage: DAILY
     Route: 048
     Dates: start: 2012
  11. FERROUS SULFATE [Concomitant]
     Active Substance: FERROUS SULFATE
     Indication: Supplementation therapy
     Dosage: DAILY
     Route: 048
     Dates: start: 2012
  12. SERTRALINE [Concomitant]
     Active Substance: SERTRALINE HYDROCHLORIDE
     Indication: Depression
     Dosage: DAILY
     Route: 048
     Dates: start: 20110811
  13. APIXABAN [Concomitant]
     Active Substance: APIXABAN
     Indication: Atrial fibrillation
     Route: 048
     Dates: start: 20220614

REACTIONS (1)
  - Ejection fraction decreased [Recovered/Resolved]

NARRATIVE: CASE EVENT DATE: 20220614
